FAERS Safety Report 22665008 (Version 1)
Quarter: 2023Q2

REPORT INFORMATION
  Report Type: Spontaneous
  Country: US (occurrence: None)
  Receive Date: 20230630
  Receipt Date: 20230630
  Transmission Date: 20230721
  Serious: Yes (Other)
  Sender: FDA-Public Use
  Company Number: None

PATIENT
  Age: 63 Year
  Sex: Female
  Weight: 77.1 kg

DRUGS (7)
  1. AZITHROMYCIN [Suspect]
     Active Substance: AZITHROMYCIN
     Indication: Pneumonia
     Dates: start: 20230627, end: 20230628
  2. CEFTRIAXONE [Concomitant]
     Active Substance: CEFTRIAXONE
     Dates: start: 20230627, end: 20230630
  3. methylprednisolone 125mg [Concomitant]
     Dates: start: 20230627, end: 20230627
  4. VANCOMYCIN [Concomitant]
     Active Substance: VANCOMYCIN
     Dates: start: 20230627, end: 20230628
  5. HALOPERIDOL [Concomitant]
     Active Substance: HALOPERIDOL
     Dates: start: 20230627, end: 20230627
  6. FAMOTIDINE [Concomitant]
     Active Substance: FAMOTIDINE
     Dates: start: 20230627, end: 20230628
  7. PIPERACILLIN SODIUM\TAZOBACTAM SODIUM [Concomitant]
     Active Substance: PIPERACILLIN SODIUM\TAZOBACTAM SODIUM
     Dates: start: 20230627, end: 20230628

REACTIONS (1)
  - Agitation [None]

NARRATIVE: CASE EVENT DATE: 20230628
